FAERS Safety Report 18096476 (Version 1)
Quarter: 2020Q3

REPORT INFORMATION
  Report Type: Spontaneous
  Country: JP (occurrence: JP)
  Receive Date: 20200731
  Receipt Date: 20200731
  Transmission Date: 20201103
  Serious: Yes (Other)
  Sender: FDA-Public Use
  Company Number: JP-LEADINGPHARMA-JP-2020LEASPO00121

PATIENT
  Sex: Female

DRUGS (1)
  1. NIFEDIPINE CAPSULES USP [Suspect]
     Active Substance: NIFEDIPINE
     Indication: PRODUCT USED FOR UNKNOWN INDICATION
     Route: 065

REACTIONS (4)
  - Exposure during pregnancy [Unknown]
  - Subchorionic haematoma [Unknown]
  - Pleural effusion [Unknown]
  - Drug ineffective [Unknown]
